FAERS Safety Report 21675016 (Version 2)
Quarter: 2023Q4

REPORT INFORMATION
  Report Type: Spontaneous
  Country: US (occurrence: US)
  Receive Date: 20221202
  Receipt Date: 20231206
  Transmission Date: 20240110
  Serious: No
  Sender: FDA-Public Use
  Company Number: US-SA-SAC20221130000668

PATIENT
  Age: 20 Year
  Sex: Female
  Weight: 58.957 kg

DRUGS (2)
  1. DUPIXENT [Suspect]
     Active Substance: DUPILUMAB
     Indication: Dermatitis atopic
     Dosage: 300 MG, QOW
     Route: 058
     Dates: start: 202210
  2. ACYCLOVIR [Concomitant]
     Active Substance: ACYCLOVIR
     Dosage: UNK

REACTIONS (8)
  - Pain of skin [Unknown]
  - Erythema [Unknown]
  - Dry eye [Unknown]
  - Eye pruritus [Unknown]
  - Dermatitis atopic [Unknown]
  - Skin fissures [Unknown]
  - Dry skin [Unknown]
  - Therapeutic response decreased [Unknown]

NARRATIVE: CASE EVENT DATE: 20221101
